FAERS Safety Report 10486710 (Version 1)
Quarter: 2014Q4

REPORT INFORMATION
  Report Type: Spontaneous
  Country: US (occurrence: US)
  Receive Date: 20141001
  Receipt Date: 20141001
  Transmission Date: 20150528
  Serious: Yes (Other)
  Sender: FDA-Public Use
  Company Number: US-BAYER-2014-140647

PATIENT
  Age: 53 Year
  Sex: Male

DRUGS (2)
  1. AVELOX [Suspect]
     Active Substance: MOXIFLOXACIN HYDROCHLORIDE
  2. OMEPRAZOLE. [Concomitant]
     Active Substance: OMEPRAZOLE

REACTIONS (1)
  - Gastrointestinal disorder [None]
